FAERS Safety Report 21305637 (Version 1)
Quarter: 2022Q3

REPORT INFORMATION
  Report Type: 
  Country: None (occurrence: None)
  Receive Date: 20220908
  Receipt Date: 20220908
  Transmission Date: 20221027
  Serious: No
  Sender: FDA-Public Use
  Company Number: CZ-BAXTER-2022BAX011190

PATIENT
  Weight: 55 kg

DRUGS (32)
  1. METHYLPREDNISOLONE [Suspect]
     Active Substance: METHYLPREDNISOLONE
     Dosage: REGIMEN#2
     Dates: start: 20210614, end: 20210614
  2. METHYLPREDNISOLONE [Suspect]
     Active Substance: METHYLPREDNISOLONE
     Dosage: REGIMEN#3
     Dates: start: 20210726, end: 20210726
  3. METHYLPREDNISOLONE [Suspect]
     Active Substance: METHYLPREDNISOLONE
     Dosage: REGIMEN#1
     Dates: start: 20210420, end: 20210420
  4. METHYLPREDNISOLONE [Suspect]
     Active Substance: METHYLPREDNISOLONE
     Dosage: REGIMEN#4 MOST RECENT DOSE ADMINISTERED ON 16/AUG/2021
     Dates: start: 20210816, end: 20210816
  5. METHYLPREDNISOLONE [Suspect]
     Active Substance: METHYLPREDNISOLONE
     Dates: start: 20210510, end: 20210510
  6. DOXORUBICIN [Suspect]
     Active Substance: DOXORUBICIN
     Dosage: 50 MG/M2, EVERY 3 WK REGIMEN#1, MOST RECENT DOSE ADMINISTERED ON 16/AUG/2021
     Dates: start: 20210420, end: 20210816
  7. CYCLOPHOSPHAMIDE [Suspect]
     Active Substance: CYCLOPHOSPHAMIDE
     Dosage: REGIMEN#1 MOST RECENT DOSE ADMINISTERED ON 16/AUG/2021
     Dates: start: 20210420, end: 20210816
  8. RITUXIMAB [Suspect]
     Active Substance: RITUXIMAB
     Dosage: REGIMEN #1, MOST RECENT DOSE ADMINISTERED ON 16/AUG/2021
     Dates: start: 20210420, end: 20210816
  9. VINCRISTINE [Suspect]
     Active Substance: VINCRISTINE
     Dosage: REGIMEN#1, MOST RECENT DOSE ADMINISTERED ON 16/AUG/2021
     Dates: start: 20210420, end: 20210816
  10. PREDNISONE [Suspect]
     Active Substance: PREDNISONE
     Dosage: REGIMEN#6
     Dates: start: 20210727, end: 20210730
  11. PREDNISONE [Suspect]
     Active Substance: PREDNISONE
     Dosage: REGIMEN#1
     Dates: start: 20210421, end: 20210424
  12. PREDNISONE [Suspect]
     Active Substance: PREDNISONE
     Dosage: REGIMEN#2
     Dates: start: 20210427, end: 20210429
  13. PREDNISONE [Suspect]
     Active Substance: PREDNISONE
     Dosage: REGIMEN#7, MOST RECENT DOSE ADMINISTERED ON 20/AUG/2021
     Dates: start: 20210817, end: 20210820
  14. PREDNISONE [Suspect]
     Active Substance: PREDNISONE
     Dosage: REGIMEN#3
     Dates: start: 20210503, end: 20210503
  15. PREDNISONE [Suspect]
     Active Substance: PREDNISONE
     Dosage: REGIMEN#5
     Dates: start: 20210615, end: 20210618
  16. PREDNISONE [Suspect]
     Active Substance: PREDNISONE
     Dosage: REGIMEN#4
     Dates: start: 20210511, end: 20210514
  17. PREDNISONE [Suspect]
     Active Substance: PREDNISONE
     Dates: start: 20220228, end: 20220228
  18. GRANISETRON HYDROCHLORIDE [Concomitant]
     Active Substance: GRANISETRON HYDROCHLORIDE
     Dosage: UNK
     Dates: start: 20210420
  19. PREDNISONE [Concomitant]
     Active Substance: PREDNISONE
     Dates: start: 20210503, end: 20210503
  20. PREDNISONE [Concomitant]
     Active Substance: PREDNISONE
     Dates: start: 20210427, end: 20210429
  21. PREDNISONE [Concomitant]
     Active Substance: PREDNISONE
     Dates: start: 20220228, end: 20220228
  22. ZALDIAR [Concomitant]
     Active Substance: ACETAMINOPHEN\TRAMADOL HYDROCHLORIDE
     Dosage: UNK
     Dates: start: 2018
  23. ALLOPURINOL [Concomitant]
     Active Substance: ALLOPURINOL
     Dosage: UNK
     Dates: start: 20210414
  24. POTASSIUM CHLORIDE [Concomitant]
     Active Substance: POTASSIUM CHLORIDE
     Dosage: UNK
     Dates: start: 20220413
  25. AMLODIPINE BESYLATE [Concomitant]
     Active Substance: AMLODIPINE BESYLATE
     Dosage: UNK
     Dates: start: 202006
  26. PARALEN (CZECH REPUBLIC) [Concomitant]
     Dosage: 1000 MG
     Dates: start: 20220228, end: 20220228
  27. NEUROL (CZECH REPUBLIC) [Concomitant]
     Dosage: UNK
     Dates: start: 20210414
  28. NOVALGIN (CZECH REPUBLIC) [Concomitant]
     Dosage: UNK
     Dates: start: 20210414
  29. VALACYCLOVIR HYDROCHLORIDE [Concomitant]
     Active Substance: VALACYCLOVIR HYDROCHLORIDE
     Dosage: UNK
     Dates: start: 20210414
  30. COTRIMOXAZOLE [Concomitant]
     Active Substance: SULFAMETHOXAZOLE\TRIMETHOPRIM
     Dosage: UNK
     Dates: start: 20210414
  31. BISULEPIN [Concomitant]
     Active Substance: BISULEPIN
     Dosage: 2 MG
     Dates: start: 20220228, end: 20220228
  32. LANSOPRAZOLE [Concomitant]
     Active Substance: LANSOPRAZOLE
     Dosage: UNK
     Dates: start: 2020

REACTIONS (1)
  - COVID-19 pneumonia [None]

NARRATIVE: CASE EVENT DATE: 20220311
